FAERS Safety Report 5277312-5 (Version None)
Quarter: 2007Q1

REPORT INFORMATION
  Report Type: 
  Country: None (occurrence: None)
  Receive Date: 20061213
  Receipt Date: 20040810
  Transmission Date: 20070707
  Serious: Yes (Life-Threatening, Hospitalization)
  Sender: FDA-Public Use
  Company Number: 2004UW14727

PATIENT
  Age: 62 Year
  Sex: Female
  Weight: 72.5755 kg

DRUGS (14)
  1. SEROQUEL [Suspect]
     Indication: HALLUCINATION
     Dosage: 50 MG PO
     Route: 048
     Dates: start: 20040322
  2. SEROQUEL [Suspect]
     Indication: INSOMNIA
     Dosage: 50 MG PO
     Route: 048
     Dates: start: 20040322
  3. SEROQUEL [Suspect]
     Indication: MAJOR DEPRESSION
     Dosage: 50 MG PO
     Route: 048
     Dates: start: 20040322
  4. SEROQUEL [Suspect]
     Indication: HALLUCINATION
     Dosage: 100 MG HS PO
     Route: 048
     Dates: start: 20040426, end: 20040702
  5. SEROQUEL [Suspect]
     Indication: INSOMNIA
     Dosage: 100 MG HS PO
     Route: 048
     Dates: start: 20040426, end: 20040702
  6. SEROQUEL [Suspect]
     Indication: MAJOR DEPRESSION
     Dosage: 100 MG HS PO
     Route: 048
     Dates: start: 20040426, end: 20040702
  7. GABAPENTIN [Concomitant]
  8. TRAMADOL HCL [Concomitant]
  9. LIPITOR [Concomitant]
  10. ROFECOXIB [Concomitant]
  11. SINGULAIR [Concomitant]
  12. TAMOXIFEN CITRATE [Concomitant]
  13. NEXIUM [Concomitant]
  14. COZAAR [Concomitant]

REACTIONS (3)
  - DIABETES MELLITUS NON-INSULIN-DEPENDENT [None]
  - DIABETIC HYPEROSMOLAR COMA [None]
  - DIABETIC KETOACIDOSIS [None]
